FAERS Safety Report 7045562-3 (Version None)
Quarter: 2010Q4

REPORT INFORMATION
  Report Type: 
  Country: None (occurrence: None)
  Receive Date: 20101014
  Receipt Date: 20101005
  Transmission Date: 20110411
  Serious: Yes (Other)
  Sender: FDA-Public Use
  Company Number: JP-GENZYME-FLUD-1000245

PATIENT
  Age: 3 Month
  Sex: Male

DRUGS (10)
  1. FLUDARA [Suspect]
     Indication: STEM CELL TRANSPLANT
     Dosage: 25 MG/M2, QDX5
     Route: 042
  2. FLUDARA [Suspect]
     Indication: OMENN SYNDROME
  3. MELPHALAN HYDROCHLORIDE [Suspect]
     Indication: STEM CELL TRANSPLANT
     Dosage: 70 MG/M2, QDX2
     Route: 065
  4. MELPHALAN HYDROCHLORIDE [Suspect]
     Indication: OMENN SYNDROME
  5. ANTI-THYMOCYTE GLOBULIN NOS [Suspect]
     Indication: STEM CELL TRANSPLANT
     Dosage: 10 MG/KG, QDX2
     Route: 065
  6. ANTI-THYMOCYTE GLOBULIN NOS [Suspect]
     Indication: OMENN SYNDROME
  7. ANTIBIOTICS [Concomitant]
     Indication: PSEUDOMONAL BACTERAEMIA
  8. PREDNISOLONE [Concomitant]
     Indication: OMENN SYNDROME
     Dosage: 1.5 MG/KG, UNK
  9. CYCLOSPORINE [Concomitant]
     Indication: PROPHYLAXIS AGAINST GRAFT VERSUS HOST DISEASE
     Dosage: 3 MG/KG, UNK
  10. METHYLPREDNISOLONE [Concomitant]
     Indication: PROPHYLAXIS AGAINST GRAFT VERSUS HOST DISEASE
     Dosage: 1 MG/KG, UNK

REACTIONS (1)
  - MYCOBACTERIUM AVIUM COMPLEX INFECTION [None]
